FAERS Safety Report 8143578-7 (Version None)
Quarter: 2012Q1

REPORT INFORMATION
  Report Type: 
  Country: None (occurrence: None)
  Receive Date: 20120217
  Receipt Date: 20111103
  Transmission Date: 20120608
  Serious: No
  Sender: FDA-Public Use
  Company Number: US-GLAXOSMITHKLINE-A0952251A

PATIENT
  Age: 72 Year
  Sex: Female
  Weight: 61.4 kg

DRUGS (6)
  1. AMLODIPINE [Concomitant]
  2. VOTRIENT [Suspect]
     Indication: PRODUCT USED FOR UNKNOWN INDICATION
     Dosage: 200MG PER DAY
     Route: 048
  3. SYNTHROID [Concomitant]
  4. CLONIDINE [Concomitant]
  5. TRIAMTERENE AND HYDROCHLOROTHIAZIDE [Concomitant]
  6. LISINOPRIL [Concomitant]

REACTIONS (1)
  - DIARRHOEA [None]
